FAERS Safety Report 7594772 (Version 4)
Quarter: 2012Q4

REPORT INFORMATION
  Report Type: 
  Country: US (occurrence: US)
  Receive Date: 20100920
  Receipt Date: 20120912
  Transmission Date: 20130627
  Serious: No
  Sender: FDA-Public Use
  Company Number: US-ASTRAZENECA-2010SE15005

PATIENT
  Age: 58 Year
  Sex: Female
  Weight: 76.7 kg

DRUGS (33)
  1. SEROQUEL [Suspect]
     Indication: BIPOLAR DISORDER
     Route: 048
  2. SEROQUEL [Suspect]
     Indication: ANXIETY
     Route: 048
  3. SEROQUEL [Suspect]
     Indication: OBSESSIVE-COMPULSIVE DISORDER
     Route: 048
  4. SEROQUEL [Suspect]
     Indication: POST-TRAUMATIC STRESS DISORDER
     Route: 048
  5. SEROQUEL [Suspect]
     Indication: DEPRESSION
     Route: 048
  6. SEROQUEL [Suspect]
     Indication: BIPOLAR DISORDER
     Route: 048
     Dates: start: 2008
  7. SEROQUEL [Suspect]
     Indication: ANXIETY
     Route: 048
     Dates: start: 2008
  8. SEROQUEL [Suspect]
     Indication: OBSESSIVE-COMPULSIVE DISORDER
     Route: 048
     Dates: start: 2008
  9. SEROQUEL [Suspect]
     Indication: POST-TRAUMATIC STRESS DISORDER
     Route: 048
     Dates: start: 2008
  10. SEROQUEL [Suspect]
     Indication: DEPRESSION
     Route: 048
     Dates: start: 2008
  11. SEROQUEL [Suspect]
     Indication: BIPOLAR DISORDER
     Dosage: TOTAL DAILY DOSE 700 MG, THREE TIMES A DAY
     Route: 048
  12. SEROQUEL [Suspect]
     Indication: ANXIETY
     Dosage: TOTAL DAILY DOSE 700 MG, THREE TIMES A DAY
     Route: 048
  13. SEROQUEL [Suspect]
     Indication: OBSESSIVE-COMPULSIVE DISORDER
     Dosage: TOTAL DAILY DOSE 700 MG, THREE TIMES A DAY
     Route: 048
  14. SEROQUEL [Suspect]
     Indication: POST-TRAUMATIC STRESS DISORDER
     Dosage: TOTAL DAILY DOSE 700 MG, THREE TIMES A DAY
     Route: 048
  15. SEROQUEL [Suspect]
     Indication: DEPRESSION
     Dosage: TOTAL DAILY DOSE 700 MG, THREE TIMES A DAY
     Route: 048
  16. SEROQUEL [Suspect]
     Indication: BIPOLAR DISORDER
     Dosage: 300 MG AT 10 AM AND 6 PM 100 MG
     Route: 048
  17. SEROQUEL [Suspect]
     Indication: ANXIETY
     Dosage: 300 MG AT 10 AM AND 6 PM 100 MG
     Route: 048
  18. SEROQUEL [Suspect]
     Indication: OBSESSIVE-COMPULSIVE DISORDER
     Dosage: 300 MG AT 10 AM AND 6 PM 100 MG
     Route: 048
  19. SEROQUEL [Suspect]
     Indication: POST-TRAUMATIC STRESS DISORDER
     Dosage: 300 MG AT 10 AM AND 6 PM 100 MG
     Route: 048
  20. SEROQUEL [Suspect]
     Indication: DEPRESSION
     Dosage: 300 MG AT 10 AM AND 6 PM 100 MG
     Route: 048
  21. SEROQUEL [Suspect]
     Indication: BIPOLAR DISORDER
     Dosage: 100 MG AT 10 AM AND LATER 100 MG
     Route: 048
  22. SEROQUEL [Suspect]
     Indication: ANXIETY
     Dosage: 100 MG AT 10 AM AND LATER 100 MG
     Route: 048
  23. SEROQUEL [Suspect]
     Indication: OBSESSIVE-COMPULSIVE DISORDER
     Dosage: 100 MG AT 10 AM AND LATER 100 MG
     Route: 048
  24. SEROQUEL [Suspect]
     Indication: POST-TRAUMATIC STRESS DISORDER
     Dosage: 100 MG AT 10 AM AND LATER 100 MG
     Route: 048
  25. SEROQUEL [Suspect]
     Indication: DEPRESSION
     Dosage: 100 MG AT 10 AM AND LATER 100 MG
     Route: 048
  26. SEROQUEL [Suspect]
     Indication: BIPOLAR DISORDER
     Dosage: 100 MG MID-AFTERNOON, 100 MG MID-EVENING AND 400 MG BEFORE BEDTIME
     Route: 048
  27. SEROQUEL [Suspect]
     Indication: ANXIETY
     Dosage: 100 MG MID-AFTERNOON, 100 MG MID-EVENING AND 400 MG BEFORE BEDTIME
     Route: 048
  28. SEROQUEL [Suspect]
     Indication: OBSESSIVE-COMPULSIVE DISORDER
     Dosage: 100 MG MID-AFTERNOON, 100 MG MID-EVENING AND 400 MG BEFORE BEDTIME
     Route: 048
  29. SEROQUEL [Suspect]
     Indication: POST-TRAUMATIC STRESS DISORDER
     Dosage: 100 MG MID-AFTERNOON, 100 MG MID-EVENING AND 400 MG BEFORE BEDTIME
     Route: 048
  30. SEROQUEL [Suspect]
     Indication: DEPRESSION
     Dosage: 100 MG MID-AFTERNOON, 100 MG MID-EVENING AND 400 MG BEFORE BEDTIME
     Route: 048
  31. XANAX [Concomitant]
     Dosage: AS NEEDED
  32. XANAX [Concomitant]
     Dosage: 0.5 MG, UNKNOWN FREQUENCY
  33. LITHIUM CARB [Concomitant]

REACTIONS (12)
  - Panic attack [Unknown]
  - Tachyphrenia [Recovered/Resolved]
  - Insomnia [Unknown]
  - Anxiety [Unknown]
  - Feeling jittery [Unknown]
  - Food craving [Unknown]
  - Mood swings [Recovered/Resolved]
  - Nervousness [Unknown]
  - Weight increased [Unknown]
  - Drug ineffective [Unknown]
  - Off label use [Unknown]
  - Drug dose omission [Unknown]
